FAERS Safety Report 14919429 (Version 5)
Quarter: 2018Q3

REPORT INFORMATION
  Report Type: Spontaneous
  Country: JP (occurrence: JP)
  Receive Date: 20180521
  Receipt Date: 20180919
  Transmission Date: 20181010
  Serious: Yes (Hospitalization)
  Sender: FDA-Public Use
  Company Number: JP-CELGENEUS-JPN-20180506493

PATIENT
  Age: 75 Year
  Sex: Female
  Weight: 35.5 kg

DRUGS (40)
  1. VIDAZA [Suspect]
     Active Substance: AZACITIDINE
     Route: 041
     Dates: end: 20180710
  2. VENETOCLAX. [Suspect]
     Active Substance: VENETOCLAX
     Dosage: 200 MILLIGRAM
     Route: 048
     Dates: start: 20170622, end: 20170622
  3. VENETOCLAX. [Suspect]
     Active Substance: VENETOCLAX
     Dosage: 400 MILLIGRAM
     Route: 048
     Dates: start: 20170623, end: 20180801
  4. HYALEIN [Concomitant]
     Active Substance: HYALURONATE SODIUM
     Dosage: 2 GTT
     Route: 065
     Dates: start: 20171218
  5. NASONEX [Concomitant]
     Active Substance: MOMETASONE FUROATE
     Dosage: 2 GTT
     Route: 065
     Dates: start: 20171218
  6. TEPRENONE [Concomitant]
     Active Substance: TEPRENONE
     Indication: GASTRITIS
     Route: 065
     Dates: start: 20180425
  7. VENETOCLAX. [Suspect]
     Active Substance: VENETOCLAX
     Dosage: 400 MILLIGRAM
     Route: 048
     Dates: start: 20180903
  8. AMLODIPINE BESILATE [Concomitant]
     Active Substance: AMLODIPINE BESYLATE
     Indication: HYPERTENSION
     Dosage: 5 MILLIGRAM
     Route: 065
     Dates: start: 20110808
  9. CLOSTRIDIUM BUTYRICUM [Concomitant]
     Active Substance: CLOSTRIDIUM BUTYRICUM SPORES STRAIN M-55
     Route: 065
     Dates: start: 20180404
  10. HYALEIN [Concomitant]
     Active Substance: HYALURONATE SODIUM
     Indication: DRY EYE
     Dosage: 200 UG
     Route: 047
     Dates: start: 20170415
  11. CASPOFUNGIN ACETATE. [Concomitant]
     Active Substance: CASPOFUNGIN ACETATE
     Dosage: 2 GTT
     Route: 065
     Dates: start: 20171218
  12. GRANISETRON [Concomitant]
     Active Substance: GRANISETRON
     Indication: PROPHYLAXIS OF NAUSEA AND VOMITING
     Route: 065
     Dates: start: 20180709, end: 20180710
  13. MAGNESIUM OXIDE. [Concomitant]
     Active Substance: MAGNESIUM OXIDE
     Indication: INFECTION PROPHYLAXIS
     Dosage: 1500 MILLIGRAM
     Route: 065
     Dates: start: 20170625
  14. PATANOL [Concomitant]
     Active Substance: OLOPATADINE HYDROCHLORIDE
     Dosage: 2 GTT
     Route: 065
     Dates: start: 20171218
  15. SHAKUYAKUKANZOTO [Concomitant]
     Active Substance: HERBALS
     Dosage: 2 GTT
     Route: 065
     Dates: start: 20171218
  16. ULCERMIN [Concomitant]
     Active Substance: SUCRALFATE
     Indication: GASTRITIS PROPHYLAXIS
     Dosage: 1 GRAM
     Route: 065
     Dates: start: 20180207
  17. VIDAZA [Suspect]
     Active Substance: AZACITIDINE
     Indication: ACUTE MYELOID LEUKAEMIA
     Dosage: 75 MILLIGRAM/SQ. METER
     Route: 041
     Dates: start: 20170619, end: 20170620
  18. CLOSTRIDIUM BUTYRICUM [Concomitant]
     Active Substance: CLOSTRIDIUM BUTYRICUM SPORES STRAIN M-55
     Indication: GASTROINTESTINAL DISORDER
     Dosage: 120 MILLIGRAM
     Route: 065
     Dates: start: 20170606
  19. ACICLOVIR [Concomitant]
     Active Substance: ACYCLOVIR
     Indication: ORAL HERPES
     Dosage: 600 MILLIGRAM
     Route: 065
     Dates: start: 20170612
  20. REBAMIPIDE [Concomitant]
     Active Substance: REBAMIPIDE
     Indication: PROPHYLAXIS AGAINST GASTROINTESTINAL ULCER
     Dosage: 300 MILLIGRAM
     Route: 065
     Dates: start: 20151205, end: 20180210
  21. LIMAPROST ALFADEX [Concomitant]
     Active Substance: LIMAPROST
     Indication: INTERVERTEBRAL DISC DEGENERATION
     Dosage: 10 UG
     Route: 065
     Dates: start: 20120718, end: 20180210
  22. VIDARABINE [Concomitant]
     Active Substance: VIDARABINE
     Indication: ORAL HERPES
     Route: 065
     Dates: start: 20170611
  23. BROMFENAC SODIUM HYDRATE [Concomitant]
     Dosage: 2 GTT
     Route: 065
     Dates: start: 20171218
  24. CASPOFUNGIN ACETATE. [Concomitant]
     Active Substance: CASPOFUNGIN ACETATE
     Indication: ANTIFUNGAL PROPHYLAXIS
     Dosage: 50 MILLIGRAM
     Route: 065
     Dates: start: 20170612
  25. VONOPRAZAN FUMARATE [Concomitant]
     Active Substance: VONOPRAZAN FUMURATE
     Indication: GASTRITIS PROPHYLAXIS
     Dosage: 20 MILLIGRAM
     Route: 065
     Dates: start: 20150207
  26. ALFACALCIDOL [Concomitant]
     Active Substance: ALFACALCIDOL
     Indication: OSTEOPOROSIS
     Dosage: 1 MICROGRAM
     Route: 065
     Dates: start: 20120901
  27. POLAPREZINC [Concomitant]
     Active Substance: POLAPREZINC
     Indication: PROPHYLAXIS AGAINST GASTROINTESTINAL ULCER
     Dosage: 150 MILLIGRAM
     Route: 065
     Dates: start: 20110808
  28. MOSAPRIDE CITRATE HYDRATE [Concomitant]
     Active Substance: MOSAPRIDE CITRATE DIHYDRATE
     Indication: PROPHYLAXIS AGAINST GASTROINTESTINAL ULCER
     Dosage: 15 MILLIGRAM
     Route: 065
     Dates: start: 20150409, end: 20180210
  29. LIMAPROST ALFADEX [Concomitant]
     Active Substance: LIMAPROST
     Dosage: 10 UG
     Route: 065
     Dates: start: 20150409
  30. TERPERAN [Concomitant]
     Active Substance: METOCLOPRAMIDE HYDROCHLORIDE
     Indication: PROPHYLAXIS OF NAUSEA AND VOMITING
     Route: 065
     Dates: start: 20170715
  31. VONOPRAZAN FUMARATE [Concomitant]
     Active Substance: VONOPRAZAN FUMURATE
     Dosage: 2 GTT
     Route: 065
     Dates: start: 20171218
  32. WHITE PETROLATUM [Concomitant]
     Active Substance: PETROLATUM
     Indication: SKIN DISORDER
     Route: 065
     Dates: start: 20180405
  33. SODIUM GUALENATE HYDRATE [Concomitant]
     Active Substance: SODIUM GUALENATE MONOHYDRATE
     Indication: INFECTION PROPHYLAXIS
     Route: 065
     Dates: start: 20170604
  34. BROMFENAC SODIUM HYDRATE [Concomitant]
     Indication: CONJUNCTIVITIS ALLERGIC
     Dosage: 2 GTT
     Route: 047
     Dates: start: 20170720
  35. NASONEX [Concomitant]
     Active Substance: MOMETASONE FUROATE
     Indication: RHINITIS ALLERGIC
     Dosage: 200 UG
     Route: 065
     Dates: start: 20171227
  36. VENETOCLAX. [Suspect]
     Active Substance: VENETOCLAX
     Indication: ACUTE MYELOID LEUKAEMIA
     Dosage: 100 MILLIGRAM
     Route: 048
     Dates: start: 20170620, end: 20170620
  37. MINODRONIC ACID HYDRATE [Concomitant]
     Active Substance: MINODRONIC ACID
     Indication: OSTEOPOROSIS
     Route: 065
     Dates: start: 20120901
  38. PANTHENOL [Concomitant]
     Active Substance: PANTHENOL
     Indication: CONSTIPATION
     Dosage: 1000 MILLIGRAM
     Route: 065
     Dates: start: 20170621
  39. PATANOL [Concomitant]
     Active Substance: OLOPATADINE HYDROCHLORIDE
     Indication: CONJUNCTIVITIS ALLERGIC
     Dosage: 3 GTT
     Route: 047
     Dates: start: 20170415
  40. SHAKUYAKUKANZOTO [Concomitant]
     Active Substance: HERBALS
     Indication: MUSCLE SPASMS
     Route: 065
     Dates: start: 20150207

REACTIONS (4)
  - Gastritis [Recovered/Resolved]
  - Pneumonia fungal [Recovered/Resolved]
  - Gastritis [Recovered/Resolved]
  - Gastritis [Recovered/Resolved]

NARRATIVE: CASE EVENT DATE: 20180209
